FAERS Safety Report 12996124 (Version 4)
Quarter: 2017Q3

REPORT INFORMATION
  Report Type: Spontaneous
  Country: CA (occurrence: CA)
  Receive Date: 20161202
  Receipt Date: 20170718
  Transmission Date: 20171127
  Serious: Yes (Other)
  Sender: FDA-Public Use
  Company Number: CA-JNJFOC-20161126730

PATIENT
  Age: 63 Year
  Sex: Male

DRUGS (3)
  1. MOTRIN IB [Suspect]
     Active Substance: IBUPROFEN
     Indication: ARTHRALGIA
     Dosage: 3RD DOSAGE MID AFTERNOON WITH HOT CHOCLATE OVER 2 DAYS ONE DAY BETWEEN DOSAGES
     Route: 065
     Dates: start: 20161118, end: 20161122
  2. PAROXETINE. [Concomitant]
     Active Substance: PAROXETINE
     Indication: SEASONAL AFFECTIVE DISORDER
     Route: 065
     Dates: start: 20121102
  3. MOTRIN IB [Suspect]
     Active Substance: IBUPROFEN
     Indication: BACK PAIN
     Dosage: 3RD DOSAGE MID AFTERNOON WITH HOT CHOCLATE OVER 2 DAYS ONE DAY BETWEEN DOSAGES
     Route: 065
     Dates: start: 20161118, end: 20161122

REACTIONS (23)
  - Balance disorder [Recovered/Resolved]
  - Blood pressure decreased [Recovered/Resolved]
  - Anxiety [Recovered/Resolved]
  - Lip swelling [Unknown]
  - Syncope [Recovered/Resolved]
  - Drug hypersensitivity [Recovered/Resolved]
  - Rash pruritic [Recovering/Resolving]
  - Nausea [Unknown]
  - Eye swelling [Recovered/Resolved]
  - Tunnel vision [Unknown]
  - Skin irritation [Recovered/Resolved]
  - Disorientation [Recovered/Resolved]
  - Hypopnoea [Recovered/Resolved]
  - Toxicity to various agents [Recovered/Resolved]
  - Dyspnoea [Unknown]
  - Hyperhidrosis [Recovered/Resolved]
  - Dizziness [Recovered/Resolved]
  - Incoherent [Unknown]
  - Heart rate decreased [Unknown]
  - Vision blurred [Recovered/Resolved]
  - Dysstasia [Unknown]
  - Loss of consciousness [Recovered/Resolved]
  - Pallor [Unknown]

NARRATIVE: CASE EVENT DATE: 20161122
